FAERS Safety Report 17521897 (Version 1)
Quarter: 2020Q1

REPORT INFORMATION
  Report Type: Spontaneous
  Country: NL (occurrence: US)
  Receive Date: 20200310
  Receipt Date: 20200310
  Transmission Date: 20200409
  Serious: Yes (Life-Threatening, Other)
  Sender: FDA-Public Use
  Company Number: NL-HONG KONG KING-FRIEND INDUSTRIAL COMPANY-2020NKF00004

PATIENT
  Age: 65 Year
  Sex: Male

DRUGS (2)
  1. HEPARIN [Suspect]
     Active Substance: HEPARIN SODIUM
     Indication: ANTIPLATELET THERAPY
     Route: 065
  2. UNSPECIFIED ANTIPLATELET THERAPY [Concomitant]
     Indication: ANTIPLATELET THERAPY
     Route: 065

REACTIONS (6)
  - Angina pectoris [Recovered/Resolved]
  - Ventricular tachycardia [Recovered/Resolved]
  - Ejection fraction decreased [Unknown]
  - Heparin-induced thrombocytopenia [Recovered/Resolved]
  - Ventricular fibrillation [Recovered/Resolved]
  - Vascular stent thrombosis [Recovered/Resolved]
